FAERS Safety Report 25184183 (Version 1)
Quarter: 2025Q2

REPORT INFORMATION
  Report Type: Report from Study
  Country: US (occurrence: US)
  Receive Date: 20250410
  Receipt Date: 20250410
  Transmission Date: 20250717
  Serious: Yes (Hospitalization, Other)
  Sender: GILEAD
  Company Number: US-GILEAD-2025-0709965

PATIENT
  Sex: Male

DRUGS (1)
  1. AMBRISENTAN [Suspect]
     Active Substance: AMBRISENTAN
     Indication: Hyperlipidaemia
     Route: 048
     Dates: start: 20240712

REACTIONS (3)
  - Cardiac failure congestive [Unknown]
  - Oedema [Unknown]
  - Product use in unapproved indication [Recovered/Resolved]
